FAERS Safety Report 7590102-3 (Version None)
Quarter: 2011Q3

REPORT INFORMATION
  Report Type: 
  Country: None (occurrence: None)
  Receive Date: 20110705
  Receipt Date: 20110624
  Transmission Date: 20111222
  Serious: Yes (Other)
  Sender: FDA-Public Use
  Company Number: B0728418A

PATIENT
  Age: 47 Year
  Sex: Male
  Weight: 113 kg

DRUGS (16)
  1. CITALOPRAM [Suspect]
  2. BEVACIZUMAB [Suspect]
  3. WARFARIN SODIUM [Suspect]
  4. CARBOPLATIN [Suspect]
     Route: 042
  5. ALPRAZOLAM [Suspect]
     Dosage: 1MG PER DAY
  6. DARBEPOETIN ALFA [Suspect]
  7. PACLITAXEL [Suspect]
     Route: 042
  8. GRANISETRON [Suspect]
     Route: 042
  9. DEXAMETHASONE [Suspect]
  10. CIMETIDINE [Suspect]
     Route: 042
  11. OXYCODONE HCL [Suspect]
     Indication: PAIN
  12. DIPHENHYDRAMINE HCL [Suspect]
  13. VITAMIN K TAB [Suspect]
  14. ERLOTINIB HYDROCHLORIDE [Suspect]
     Route: 048
  15. LOPERAMIDE [Suspect]
  16. RADIATION [Suspect]

REACTIONS (7)
  - INTERNATIONAL NORMALISED RATIO INCREASED [None]
  - HAEMATOMA [None]
  - SWELLING [None]
  - RASH [None]
  - CONTUSION [None]
  - DRUG INTERACTION [None]
  - DIARRHOEA [None]
